FAERS Safety Report 19480912 (Version 2)
Quarter: 2024Q1

REPORT INFORMATION
  Report Type: Report from Study
  Country: AT (occurrence: AT)
  Receive Date: 20210630
  Receipt Date: 20240307
  Transmission Date: 20240409
  Serious: Yes (Hospitalization)
  Sender: FDA-Public Use
  Company Number: AT-CELLTRION HEALTHCARE HUNGARY KFT-2019AT022614

PATIENT

DRUGS (24)
  1. TRASTUZUMAB [Suspect]
     Active Substance: TRASTUZUMAB
     Indication: Breast cancer metastatic
     Dosage: 6 MICROGRAM/KILOGRAM, Q3WK (MOST RECENT DOSE PRIOR TO THE EVENT: 14/DEC/2018)
     Route: 042
     Dates: start: 20180821
  2. TRASTUZUMAB [Suspect]
     Active Substance: TRASTUZUMAB
     Dosage: 8 MICROGRAM/KILOGRAM
     Route: 042
     Dates: start: 20180731, end: 20180731
  3. TRASTUZUMAB [Suspect]
     Active Substance: TRASTUZUMAB
     Dosage: 312 MILLIGRAM, Q3WK (MOST RECENT DOSE PRIOR TO THE EVENT: 01/APR/2019)
     Route: 042
     Dates: start: 20181205
  4. FEMARA [Suspect]
     Active Substance: LETROZOLE
     Indication: HER2 positive breast cancer
     Dosage: 2.5 MILLIGRAM, QD
     Route: 048
     Dates: start: 20181205, end: 201904
  5. PACLITAXEL [Suspect]
     Active Substance: PACLITAXEL
     Indication: HER2 positive breast cancer
     Dosage: 123.18 MG, EVERY 1 WEEK (MOST RECENT DOSE ON 25/SEP/2018)
     Route: 042
     Dates: start: 20180724
  6. AROMASIN [Suspect]
     Active Substance: EXEMESTANE
     Indication: HER2 positive breast cancer
     Dosage: UNK (MOST RECENT DOSE /AUG/2019)
     Route: 048
     Dates: start: 201904
  7. HERCEPTIN [Suspect]
     Active Substance: TRASTUZUMAB
     Indication: HER2 positive breast cancer
     Dosage: 8 MG/KG, EVERY 3 WEEKS
     Route: 042
     Dates: start: 20180731, end: 20180731
  8. HERCEPTIN [Suspect]
     Active Substance: TRASTUZUMAB
     Dosage: 6 MG/KG, EVERY 3 WEEKS; (MOST RECENT DOSE PRIOR TO THE EVENT: 14/DEC/2018)
     Route: 042
     Dates: start: 20180821
  9. ARIMIDEX [Suspect]
     Active Substance: ANASTROZOLE
     Indication: HER2 positive breast cancer
     Dosage: 1 MILLIGRAM ((MOST RECENT DOSE 05/DEC/2018))
     Route: 048
     Dates: start: 20181009
  10. PERJETA [Suspect]
     Active Substance: PERTUZUMAB
     Indication: HER2 positive breast cancer
     Dosage: 420 MG, EVERY 3 WEEKS (MOST RECENT DOSE PRIOR TO THE EVENT: 06/MAR/2019)
     Route: 042
     Dates: start: 20180821, end: 20190306
  11. PERJETA [Suspect]
     Active Substance: PERTUZUMAB
     Dosage: 840 MG, EVERY 3 WEEKS
     Route: 042
     Dates: start: 20180731, end: 20180731
  12. ONTRUZANT [Suspect]
     Active Substance: TRASTUZUMAB-DTTB
     Indication: Product used for unknown indication
     Dosage: 312 MILLIGRAM, Q3WK
     Route: 042
     Dates: start: 20181205, end: 20190401
  13. TRAZODONE HYDROCHLORIDE [Concomitant]
     Active Substance: TRAZODONE HYDROCHLORIDE
     Dosage: UNK
     Dates: start: 20180615
  14. Daflon [Concomitant]
     Indication: Oedema peripheral
  15. RANITIDINE HYDROCHLORIDE [Concomitant]
     Active Substance: RANITIDINE HYDROCHLORIDE
     Dosage: UNK
     Dates: start: 20181002, end: 20190401
  16. DIMETHINDENE [Concomitant]
     Active Substance: DIMETHINDENE
     Dosage: UNK
     Dates: start: 20181002, end: 20190401
  17. ZYRTEC [Concomitant]
     Active Substance: CETIRIZINE HYDROCHLORIDE
     Indication: Pruritus
     Dosage: UNK
     Dates: start: 20181227
  18. PANTOPRAZOLE SODIUM [Concomitant]
     Active Substance: PANTOPRAZOLE SODIUM
     Dosage: UNK
  19. CIPRALEX [Concomitant]
     Active Substance: ESCITALOPRAM OXALATE
     Dosage: UNK
     Dates: start: 20190515
  20. LACTULOSE [Concomitant]
     Active Substance: LACTULOSE
     Indication: Constipation
     Dosage: UNK
     Dates: start: 20181227, end: 20190615
  21. Paspertin [Concomitant]
     Dosage: UNK
     Dates: start: 20180807
  22. ALPRAZOLAM [Concomitant]
     Active Substance: ALPRAZOLAM
     Dosage: UNK
     Dates: start: 20180615
  23. LOVENOX [Concomitant]
     Active Substance: ENOXAPARIN SODIUM
     Dosage: UNK
     Dates: start: 20180828, end: 20190615
  24. Novalgin [Concomitant]
     Dosage: UNK
     Dates: start: 20180807

REACTIONS (5)
  - Somnolence [Not Recovered/Not Resolved]
  - Headache [Not Recovered/Not Resolved]
  - Rash [Recovering/Resolving]
  - Nausea [Recovering/Resolving]
  - Vertigo [Recovering/Resolving]

NARRATIVE: CASE EVENT DATE: 20190415
